FAERS Safety Report 10213374 (Version 1)
Quarter: 2014Q2

REPORT INFORMATION
  Report Type: Spontaneous
  Country: US (occurrence: None)
  Receive Date: 20140530
  Receipt Date: 20140530
  Transmission Date: 20141212
  Serious: Yes (Life-Threatening)
  Sender: FDA-Public Use
  Company Number: None

PATIENT
  Age: 67 Year
  Sex: Male
  Weight: 93.6 kg

DRUGS (1)
  1. HYDROMORPHONE [Suspect]
     Dates: start: 20130210

REACTIONS (2)
  - Apnoea [None]
  - Unresponsive to stimuli [None]
